FAERS Safety Report 18237191 (Version 8)
Quarter: 2021Q2

REPORT INFORMATION
  Report Type: Report from Study
  Country: US (occurrence: US)
  Receive Date: 20200907
  Receipt Date: 20210604
  Transmission Date: 20210717
  Serious: Yes (Hospitalization, Other)
  Sender: FDA-Public Use
  Company Number: US-BIOVITRUM-2020US2895

PATIENT
  Age: 14 Year
  Sex: Male

DRUGS (6)
  1. CELLCEPT [Concomitant]
     Active Substance: MYCOPHENOLATE MOFETIL\MYCOPHENOLATE MOFETIL HYDROCHLORIDE
  2. FAMOTIDINE. [Concomitant]
     Active Substance: FAMOTIDINE
  3. LAMICTAL [Concomitant]
     Active Substance: LAMOTRIGINE
  4. KINERET [Suspect]
     Active Substance: ANAKINRA
     Indication: EPILEPSY
     Route: 058
     Dates: start: 20200515
  5. KINERET [Suspect]
     Active Substance: ANAKINRA
     Route: 058
     Dates: start: 20200515
  6. EPIDIOLEX [Concomitant]
     Active Substance: CANNABIDIOL

REACTIONS (20)
  - Alanine aminotransferase increased [Unknown]
  - Condition aggravated [Unknown]
  - Eye swelling [Unknown]
  - Product dose omission issue [Unknown]
  - Autism spectrum disorder [Unknown]
  - Diarrhoea [Unknown]
  - Aspartate aminotransferase increased [Unknown]
  - Hypersensitivity [Unknown]
  - Injection site pain [Unknown]
  - C-reactive protein increased [Unknown]
  - Eye pruritus [Unknown]
  - Eye pain [Unknown]
  - Pruritus [Recovered/Resolved]
  - Ocular hyperaemia [Unknown]
  - Neutrophil count decreased [Unknown]
  - Red blood cell sedimentation rate increased [Unknown]
  - Off label use [Unknown]
  - Infusion site reaction [Unknown]
  - Gastrointestinal infection [Unknown]
  - Contusion [Unknown]

NARRATIVE: CASE EVENT DATE: 20200515
